FAERS Safety Report 9837397 (Version 1)
Quarter: 2014Q1

REPORT INFORMATION
  Report Type: Spontaneous
  Country: US (occurrence: None)
  Receive Date: 20140117
  Receipt Date: 20140117
  Transmission Date: 20141002
  Serious: Yes (Other)
  Sender: FDA-Public Use
  Company Number: None

PATIENT
  Age: 25 Year
  Sex: Male
  Weight: 86.18 kg

DRUGS (1)
  1. MEFLOQUINE HYDROCHLORIDE [Suspect]
     Indication: MALARIA PROPHYLAXIS
     Dosage: 1 PILL  ONCE WEEKLY  TAKEN BY MOUTH
     Route: 048
     Dates: start: 20100710, end: 20130517

REACTIONS (7)
  - Headache [None]
  - Convulsion [None]
  - Mucous stools [None]
  - Decreased appetite [None]
  - Ageusia [None]
  - Thirst [None]
  - Agitation [None]
